FAERS Safety Report 6234935-4 (Version None)
Quarter: 2009Q2

REPORT INFORMATION
  Report Type: 
  Country: None (occurrence: None)
  Receive Date: 20090618
  Receipt Date: 20090610
  Transmission Date: 20091009
  Serious: Yes (Other)
  Sender: FDA-Public Use
  Company Number: B0572745A

PATIENT
  Sex: Female

DRUGS (7)
  1. AUGMENTIN '125' [Suspect]
     Indication: ANTIBIOTIC PROPHYLAXIS
     Dosage: 2G PER DAY
     Route: 042
     Dates: start: 20090116, end: 20090116
  2. ATRACURIUM [Suspect]
     Indication: DRUG USE FOR UNKNOWN INDICATION
     Dosage: 6MG PER DAY
     Route: 042
     Dates: start: 20090116, end: 20090116
  3. KETAMINE HCL [Suspect]
     Indication: DRUG USE FOR UNKNOWN INDICATION
     Dosage: 20MG PER DAY
     Route: 042
     Dates: start: 20090116, end: 20090116
  4. PROPOFOL [Suspect]
     Indication: DRUG USE FOR UNKNOWN INDICATION
     Dosage: 150MG PER DAY
     Route: 042
     Dates: start: 20090116, end: 20090116
  5. SUFENTA PRESERVATIVE FREE [Suspect]
     Indication: DRUG USE FOR UNKNOWN INDICATION
     Dosage: 5MG PER DAY
     Route: 042
     Dates: start: 20090116, end: 20090116
  6. PROPACETAMOL [Suspect]
     Dosage: 1G FOUR TIMES PER DAY
     Route: 042
     Dates: start: 20090116, end: 20090118
  7. ACUPAN [Suspect]
     Indication: DRUG USE FOR UNKNOWN INDICATION
     Dosage: 20MG PER DAY
     Route: 042
     Dates: start: 20090116, end: 20090116

REACTIONS (1)
  - INJECTION SITE THROMBOSIS [None]
